FAERS Safety Report 22279345 (Version 1)
Quarter: 2023Q2

REPORT INFORMATION
  Report Type: Spontaneous
  Country: US (occurrence: None)
  Receive Date: 20230502
  Receipt Date: 20230502
  Transmission Date: 20230721
  Serious: Yes (Hospitalization)
  Sender: FDA-Public Use
  Company Number: None

PATIENT
  Sex: Male

DRUGS (15)
  1. PULMOZYME [Suspect]
     Active Substance: DORNASE ALFA
     Indication: Infective pulmonary exacerbation of cystic fibrosis
     Dates: start: 20220201
  2. ADVAIR HFA AER [Concomitant]
  3. ALBUTEROL AER HFA [Concomitant]
  4. ALBUTEROL [Concomitant]
     Active Substance: ALBUTEROL
  5. AZITHROMYCIN TAB [Concomitant]
  6. BACTRIM [Concomitant]
     Active Substance: SULFAMETHOXAZOLE\TRIMETHOPRIM
  7. BOOST HI-PRO CHOCOLATE [Concomitant]
  8. CETIRIZINE [Concomitant]
  9. MINERALS\VITAMINS [Concomitant]
     Active Substance: MINERALS\VITAMINS
  10. CREON [Concomitant]
     Active Substance: PANCRELIPASE AMYLASE\PANCRELIPASE LIPASE\PANCRELIPASE PROTEASE
  11. FAMOTIDINE [Concomitant]
     Active Substance: FAMOTIDINE
  12. POLYETH GLYC POW 3350 [Concomitant]
  13. PREDNISONE [Concomitant]
  14. TOBI PODHALER [Concomitant]
     Active Substance: TOBRAMYCIN
  15. TOBRAMYCIN [Concomitant]
     Active Substance: TOBRAMYCIN

REACTIONS (2)
  - Pneumonia [None]
  - Therapy interrupted [None]
